FAERS Safety Report 19854784 (Version 2)
Quarter: 2021Q4

REPORT INFORMATION
  Report Type: Report from Study
  Country: None (occurrence: US)
  Receive Date: 20210920
  Receipt Date: 20211020
  Transmission Date: 20220303
  Serious: Yes (Hospitalization, Other)
  Sender: FDA-Public Use
  Company Number: US-ABBVIE-21K-163-4084748-00

PATIENT
  Sex: Female

DRUGS (1)
  1. HUMIRA [Suspect]
     Active Substance: ADALIMUMAB
     Indication: Crohn^s disease
     Route: 058

REACTIONS (6)
  - Epilepsy [Unknown]
  - Cerebral haemorrhage [Unknown]
  - Central nervous system infection [Recovering/Resolving]
  - Accident [Unknown]
  - Hypoacusis [Unknown]
  - Fall [Unknown]

NARRATIVE: CASE EVENT DATE: 20170101
